FAERS Safety Report 24558470 (Version 1)
Quarter: 2024Q4

REPORT INFORMATION
  Report Type: Spontaneous
  Country: HU (occurrence: GB)
  Receive Date: 20241029
  Receipt Date: 20241029
  Transmission Date: 20250114
  Serious: Yes (Other)
  Sender: SUNOVION
  Company Number: GB-MHRA-TPP16163787C3528422YC1728648222409

PATIENT

DRUGS (3)
  1. ESTRADIOL\NORETHINDRONE ACETATE\RELUGOLIX [Suspect]
     Active Substance: ESTRADIOL\NORETHINDRONE ACETATE\RELUGOLIX
     Indication: Product used for unknown indication
     Dosage: ^PLEASE ENSURE TO TAKE 6 ...^
     Route: 065
     Dates: start: 20240815
  2. PAROXETINE HYDROCHLORIDE [Concomitant]
     Active Substance: PAROXETINE HYDROCHLORIDE
     Dates: start: 20240501
  3. FERROUS FUMARATE [Concomitant]
     Active Substance: FERROUS FUMARATE
     Dosage: 2X5ML SPOON
     Dates: start: 20240531

REACTIONS (4)
  - Migraine [Unknown]
  - Migraine with aura [Unknown]
  - Condition aggravated [Unknown]
  - Contraindicated product administered [Unknown]
